FAERS Safety Report 22907833 (Version 7)
Quarter: 2024Q4

REPORT INFORMATION
  Report Type: Spontaneous
  Country: JP (occurrence: JP)
  Receive Date: 20230905
  Receipt Date: 20241115
  Transmission Date: 20250114
  Serious: Yes (Death, Life-Threatening, Disabling, Other)
  Sender: ALEXION PHARMACEUTICALS
  Company Number: 2023A199245

PATIENT
  Age: 75 Year
  Weight: 49 kg

DRUGS (10)
  1. ONDEXXYA [Suspect]
     Active Substance: ANDEXANET ALFA
     Indication: Traumatic intracranial haemorrhage
     Dosage: 880 MILLIGRAM, UNK, FREQUENCY: UNK
  2. ONDEXXYA [Suspect]
     Active Substance: ANDEXANET ALFA
     Dosage: 880 MILLIGRAM, UNK, FREQUENCY: UNK
  3. ONDEXXYA [Suspect]
     Active Substance: ANDEXANET ALFA
     Dosage: 880 MILLIGRAM, UNK, FREQUENCY: UNK
  4. ONDEXXYA [Suspect]
     Active Substance: ANDEXANET ALFA
     Dosage: 880 MILLIGRAM, UNK, FREQUENCY: UNK
  5. ELIQUIS [Concomitant]
     Active Substance: APIXABAN
     Indication: Ischaemic stroke
     Dosage: 2.5 MILLIGRAM, BID
  6. ELIQUIS [Concomitant]
     Active Substance: APIXABAN
     Dosage: 2.5 MILLIGRAM, BID
  7. ELIQUIS [Concomitant]
     Active Substance: APIXABAN
     Dosage: 2.5 MILLIGRAM, BID
  8. ELIQUIS [Concomitant]
     Active Substance: APIXABAN
     Dosage: 2.5 MILLIGRAM, BID
  9. ELIQUIS [Concomitant]
     Active Substance: APIXABAN
  10. ELIQUIS [Concomitant]
     Active Substance: APIXABAN

REACTIONS (4)
  - Pneumonia staphylococcal [Fatal]
  - Haemorrhagic cerebral infarction [Not Recovered/Not Resolved]
  - Subdural haematoma [Unknown]
  - Staphylococcal bacteraemia [Unknown]
